FAERS Safety Report 7326799-2 (Version None)
Quarter: 2011Q1

REPORT INFORMATION
  Report Type: 
  Country: None (occurrence: None)
  Receive Date: 20110302
  Receipt Date: 20100216
  Transmission Date: 20110831
  Serious: No
  Sender: FDA-Public Use
  Company Number: US-PFIZER INC-2004039872

PATIENT
  Sex: Male

DRUGS (3)
  1. CARBAMAZEPINE [Suspect]
     Route: 065
  2. FLUCONAZOLE [Suspect]
     Indication: ORAL FUNGAL INFECTION
     Dosage: 200 MG EVERY OTHER DAY
     Dates: start: 20090724, end: 20091212
  3. DILANTIN-125 [Suspect]
     Indication: CONVULSION
     Dosage: UNK
     Route: 065
     Dates: start: 19950904

REACTIONS (5)
  - ANTICONVULSANT DRUG LEVEL INCREASED [None]
  - DRUG INEFFECTIVE [None]
  - DRY MOUTH [None]
  - ORAL FUNGAL INFECTION [None]
  - ANTICONVULSANT DRUG LEVEL DECREASED [None]
